FAERS Safety Report 8426286-4 (Version None)
Quarter: 2012Q2

REPORT INFORMATION
  Report Type: 
  Country: None (occurrence: None)
  Receive Date: 20120611
  Receipt Date: 20120528
  Transmission Date: 20120825
  Serious: Yes (Death, Hospitalization)
  Sender: FDA-Public Use
  Company Number: DE-RANBAXY-2012US-57049

PATIENT

DRUGS (8)
  1. ASPIRIN [Concomitant]
     Indication: ACUTE CORONARY SYNDROME
     Route: 065
  2. ENOXAPARIN [Concomitant]
     Indication: ACUTE CORONARY SYNDROME
     Dosage: 40MG. 1 IN 12 HOURS
     Route: 065
  3. TIROFIBAN [Concomitant]
     Indication: ACUTE CORONARY SYNDROME
     Dosage: 0.4MCG/KG.MIN FOR 30MIN
     Route: 042
  4. TIROFIBAN [Concomitant]
     Dosage: 0.1MCG/KG.MIN FOR 2DAYS
     Route: 042
  5. PANTOPRAZOLE [Suspect]
     Indication: PROPHYLAXIS
     Dosage: 40 MG,
     Route: 058
  6. ENOXAPARIN [Concomitant]
     Dosage: 1MG/KG,1 IN 12 HOURS
     Route: 065
  7. PANTOPRAZOLE [Suspect]
     Dosage: 40 MG, BID
     Route: 048
  8. CLOPIDOGREL [Concomitant]
     Indication: ACUTE CORONARY SYNDROME
     Route: 065

REACTIONS (1)
  - PERCUTANEOUS CORONARY INTERVENTION [None]
